FAERS Safety Report 15889723 (Version 1)
Quarter: 2019Q1

REPORT INFORMATION
  Report Type: Spontaneous
  Country: JP (occurrence: JP)
  Receive Date: 20190130
  Receipt Date: 20190130
  Transmission Date: 20190417
  Serious: Yes (Other)
  Sender: FDA-Public Use
  Company Number: JP-OTSUKA-2019_002285

PATIENT
  Sex: Female

DRUGS (6)
  1. IFOSFAMIDE. [Suspect]
     Active Substance: IFOSFAMIDE
     Indication: TRANSPLANT
  2. MELPHALAN. [Suspect]
     Active Substance: MELPHALAN
     Indication: PLEUROPULMONARY BLASTOMA
     Dosage: UNK
     Route: 065
  3. BUSULFEX [Suspect]
     Active Substance: BUSULFAN
     Indication: TRANSPLANT
  4. IFOSFAMIDE. [Suspect]
     Active Substance: IFOSFAMIDE
     Indication: PLEUROPULMONARY BLASTOMA
     Dosage: UNK
     Route: 065
  5. BUSULFEX [Suspect]
     Active Substance: BUSULFAN
     Indication: PLEUROPULMONARY BLASTOMA
     Dosage: UNK
     Route: 065
  6. MELPHALAN. [Suspect]
     Active Substance: MELPHALAN
     Indication: TRANSPLANT

REACTIONS (2)
  - Thyroid cancer [Unknown]
  - Product use in unapproved indication [Unknown]
